FAERS Safety Report 6143702-1 (Version None)
Quarter: 2009Q2

REPORT INFORMATION
  Report Type: 
  Country: None (occurrence: None)
  Receive Date: 20090403
  Receipt Date: 20040802
  Transmission Date: 20091009
  Serious: Yes (Other)
  Sender: FDA-Public Use
  Company Number: IL-ROCHE-369648

PATIENT
  Sex: Male
  Weight: 91 kg

DRUGS (19)
  1. DACLIZUMAB [Suspect]
     Dosage: BASELINE VISIT
     Route: 042
     Dates: start: 20040523, end: 20040523
  2. MYCOPHENOLATE MOFETIL [Suspect]
     Route: 048
     Dates: start: 20040524
  3. TACROLIMUS [Suspect]
     Route: 048
     Dates: start: 20040524, end: 20040525
  4. TACROLIMUS [Suspect]
     Route: 048
     Dates: start: 20040603, end: 20041114
  5. TACROLIMUS [Suspect]
     Route: 048
     Dates: start: 20041115, end: 20050504
  6. TACROLIMUS [Suspect]
     Route: 048
     Dates: start: 20050505
  7. PREDNISONE [Suspect]
     Route: 048
     Dates: start: 20040525, end: 20040603
  8. ENOXAPARIN SODIUM [Concomitant]
     Route: 058
     Dates: start: 20040525, end: 20040529
  9. OMEPRAZOLE [Concomitant]
     Route: 048
     Dates: start: 20040524
  10. TRIMETHOPRIM + SULFAMETHOXAZOLE [Concomitant]
     Dosage: 80 + 400 MG WAS REPORTED AS THE DOSE AND HALF A TABLET A DAY WAS REPORTED FOR THE FRQUENCY.
     Route: 048
     Dates: start: 20040524
  11. GANCICLOVIR IV [Concomitant]
     Route: 042
     Dates: start: 20040524, end: 20040531
  12. AMIODARONE HCL [Concomitant]
     Route: 048
     Dates: start: 20040601, end: 20040612
  13. ACETYLSALICYLIC ACID [Concomitant]
     Route: 048
     Dates: start: 20050201
  14. METHYLPREDNISOLONE 4MG TAB [Concomitant]
     Route: 042
     Dates: start: 20040524, end: 20040524
  15. NORMALOL [Concomitant]
     Route: 048
     Dates: start: 20050415
  16. GANCICLOVIR [Concomitant]
     Route: 048
     Dates: start: 20040525
  17. GANCICLOVIR [Concomitant]
     Route: 048
     Dates: start: 20040602, end: 20040615
  18. SIMVASTATIN [Concomitant]
     Route: 048
     Dates: start: 20040817
  19. THYMOGLOBULIN [Concomitant]
     Route: 042
     Dates: start: 20040525, end: 20050531

REACTIONS (2)
  - ACUTE PSYCHOSIS [None]
  - ATRIAL FIBRILLATION [None]
